FAERS Safety Report 8084264-1 (Version None)
Quarter: 2012Q1

REPORT INFORMATION
  Report Type: 
  Country: None (occurrence: None)
  Receive Date: 20120128
  Receipt Date: 20110306
  Transmission Date: 20120608
  Serious: No
  Sender: FDA-Public Use
  Company Number: US-ABBOTT-11P-163-0709682-00

PATIENT
  Age: 52 Year
  Sex: Male

DRUGS (4)
  1. HUMIRA [Suspect]
     Dates: start: 20101201, end: 20110201
  2. HUMIRA [Suspect]
     Indication: CROHN'S DISEASE
  3. OMEPRAZOLE [Concomitant]
     Indication: PRODUCT USED FOR UNKNOWN INDICATION
  4. VITAMIN TAB [Concomitant]
     Indication: PRODUCT USED FOR UNKNOWN INDICATION

REACTIONS (6)
  - OCULAR HYPERAEMIA [None]
  - PSORIASIS [None]
  - DRUG DOSE OMISSION [None]
  - OPHTHALMIC FLUID DRAINAGE [None]
  - MEDICATION ERROR [None]
  - CROHN'S DISEASE [None]
